FAERS Safety Report 20678986 (Version 3)
Quarter: 2023Q1

REPORT INFORMATION
  Report Type: Spontaneous
  Country: IN (occurrence: IN)
  Receive Date: 20220406
  Receipt Date: 20230131
  Transmission Date: 20230417
  Serious: Yes (Death, Hospitalization)
  Sender: FDA-Public Use
  Company Number: IN-PFIZER INC-2021072709

PATIENT
  Age: 69 Year
  Sex: Female

DRUGS (1)
  1. PALBOCICLIB [Suspect]
     Active Substance: PALBOCICLIB
     Indication: Breast cancer metastatic
     Dosage: 125 MG, 1X/DAY
     Route: 048
     Dates: start: 20201204, end: 202108

REACTIONS (6)
  - Death [Fatal]
  - Breast operation [Recovered/Resolved]
  - Lung operation [Recovered/Resolved]
  - COVID-19 [Unknown]
  - Respiratory tract infection [Unknown]
  - Pain [Unknown]
